FAERS Safety Report 4758764-3 (Version None)
Quarter: 2005Q3

REPORT INFORMATION
  Report Type: 
  Country: None (occurrence: None)
  Receive Date: 20050901
  Receipt Date: 20050810
  Transmission Date: 20060218
  Serious: Yes (Hospitalization)
  Sender: FDA-Public Use
  Company Number: 2005AP04393

PATIENT
  Age: 28964 Day
  Sex: Male
  Weight: 59.2 kg

DRUGS (18)
  1. IRESSA [Suspect]
     Indication: LUNG ADENOCARCINOMA
     Route: 048
     Dates: start: 20050706, end: 20050721
  2. MUCOSTA [Concomitant]
     Indication: GASTRIC ULCER
     Route: 048
     Dates: start: 20050101, end: 20050809
  3. ISOSORBIDE MONONITRATE [Concomitant]
     Indication: HYPERTENSION
     Route: 048
     Dates: start: 20050101, end: 20050809
  4. ASPIRIN [Concomitant]
     Indication: MYOCARDIAL INFARCTION
     Route: 048
     Dates: start: 20050101, end: 20050809
  5. NIKORANMART [Concomitant]
     Indication: MYOCARDIAL INFARCTION
     Route: 048
     Dates: start: 20050101, end: 20050809
  6. ALLOPURINOL [Concomitant]
     Indication: HYPERURICAEMIA
     Route: 048
     Dates: start: 20050101, end: 20050809
  7. HARNAL [Concomitant]
     Indication: BENIGN PROSTATIC HYPERPLASIA
     Route: 048
     Dates: start: 20050101, end: 20050809
  8. BASEN [Concomitant]
     Indication: DIABETES MELLITUS
     Route: 048
     Dates: start: 20050101, end: 20050809
  9. AMLODIN [Concomitant]
     Indication: HYPERTENSION
     Route: 048
     Dates: start: 20050101, end: 20050809
  10. RIZE [Concomitant]
     Indication: ANXIETY DISORDER
     Route: 048
     Dates: start: 20050101, end: 20050809
  11. HOKUNALIN [Concomitant]
     Indication: LUNG ADENOCARCINOMA
     Route: 048
     Dates: start: 20050101
  12. KETOPROFEN [Concomitant]
     Indication: CANCER PAIN
     Dates: start: 20050704
  13. MOBIC [Concomitant]
     Indication: CANCER PAIN
     Route: 048
     Dates: start: 20050715, end: 20050809
  14. HALCION [Concomitant]
     Indication: INSOMNIA
     Route: 048
     Dates: start: 20050719, end: 20050809
  15. CARBOPLATIN [Concomitant]
     Dosage: 1 COURSE
     Dates: start: 20050614
  16. PACLITAXEL [Concomitant]
     Dosage: 1 COURSE
     Dates: start: 20050614
  17. RADIATION THERAPY [Concomitant]
     Dosage: TO METS IN RIGHT SUPRACLAVICULAR LYMPH NODE. GIVEN 10 TIMES.
     Dates: start: 20050804, end: 20050809
  18. RADIATION THERAPY [Concomitant]
     Dosage: TO METS IN RIGHT SUPRACLAVICULAR LYMPH NODE. GIVEN 10 TIMES.
     Dates: start: 20050811

REACTIONS (2)
  - GASTRIC ULCER HAEMORRHAGE [None]
  - PNEUMOCYSTIS JIROVECI PNEUMONIA [None]
